FAERS Safety Report 14523606 (Version 1)
Quarter: 2018Q1

REPORT INFORMATION
  Report Type: Spontaneous
  Country: US (occurrence: US)
  Receive Date: 20180212
  Receipt Date: 20180212
  Transmission Date: 20180509
  Serious: No
  Sender: FDA-Public Use
  Company Number: US-BRISTOL-MYERS SQUIBB COMPANY-BMS-2018-011699

PATIENT
  Sex: Male

DRUGS (3)
  1. TURMERIC                           /01079602/ [Suspect]
     Active Substance: HERBALS\TURMERIC
     Indication: RHEUMATIC DISORDER
     Dosage: UNK
     Route: 065
  2. ELIQUIS [Suspect]
     Active Substance: APIXABAN
     Indication: CEREBROVASCULAR ACCIDENT PROPHYLAXIS
     Dosage: 5 MG, BID
     Route: 048
  3. CUMIN. [Suspect]
     Active Substance: CUMIN
     Indication: RHEUMATIC DISORDER
     Route: 065

REACTIONS (1)
  - Epistaxis [Recovered/Resolved]
